FAERS Safety Report 4492436-8 (Version None)
Quarter: 2004Q4

REPORT INFORMATION
  Report Type: 
  Country: None (occurrence: None)
  Receive Date: 20041029
  Receipt Date: 20041018
  Transmission Date: 20050328
  Serious: Yes (Hospitalization, Other)
  Sender: FDA-Public Use
  Company Number: 2004079351

PATIENT
  Age: 43 Year
  Sex: Male
  Weight: 62 kg

DRUGS (9)
  1. NORVASC [Suspect]
     Indication: ILL-DEFINED DISORDER
     Dosage: 10 MG (10 MG, 1 IN 1 D), ORAL
     Route: 048
     Dates: start: 20030220
  2. ALLOPURINOL [Suspect]
     Indication: ILL-DEFINED DISORDER
     Dosage: 100 MG (100 MG, 1 IN 1 D), ORAL
     Route: 048
     Dates: start: 20040323, end: 20040601
  3. CYCLOSPORINE [Suspect]
     Indication: RENAL TRANSPLANT
     Dosage: 200 MG (100 MG, UNKNOWN), ORAL
     Route: 048
     Dates: start: 20041024
  4. METOPROLOL SUCCINATE [Suspect]
     Indication: ILL-DEFINED DISORDER
     Dosage: ORAL
     Route: 048
  5. ASPIRIN [Suspect]
     Indication: ILL-DEFINED DISORDER
     Dosage: 100 MG (100 MG, 1 IN 1 D), ORAL
     Route: 048
  6. PANTOPRAZOLE SODIUM [Suspect]
     Indication: ILL-DEFINED DISORDER
     Dosage: 80 MG (40 MG, UNKNOWN), ORAL
     Route: 048
     Dates: start: 20040501
  7. MYCOPHENOLATE SODIUM ( MYCOPHENOLIC ACID SODIUM SALT) [Concomitant]
  8. EPOETIN BETA (EPOETIN BETA) [Concomitant]
  9. PREDNISONE [Concomitant]

REACTIONS (3)
  - CONDITION AGGRAVATED [None]
  - HEPATITIS CHOLESTATIC [None]
  - HEPATOTOXICITY [None]
